FAERS Safety Report 24986200 (Version 1)
Quarter: 2025Q1

REPORT INFORMATION
  Report Type: Spontaneous
  Country: US (occurrence: None)
  Receive Date: 20250218
  Receipt Date: 20250218
  Transmission Date: 20250409
  Serious: Yes (Other)
  Sender: FDA-CTU
  Company Number: None

PATIENT
  Age: 83 Year
  Sex: Male

DRUGS (4)
  1. LEQEMBI [Suspect]
     Active Substance: LECANEMAB-IRMB
     Indication: Dementia Alzheimer^s type
     Dates: start: 20240301, end: 20250218
  2. atorvastatin 10mg PO QHS [Concomitant]
  3. donepezil 10mg PO daily [Concomitant]
  4. memantine 10mg PO BID [Concomitant]

REACTIONS (2)
  - Blindness [None]
  - Magnetic resonance imaging head abnormal [None]

NARRATIVE: CASE EVENT DATE: 20250210
